FAERS Safety Report 8295131-2 (Version None)
Quarter: 2012Q2

REPORT INFORMATION
  Report Type: 
  Country: None (occurrence: None)
  Receive Date: 20120418
  Receipt Date: 20120413
  Transmission Date: 20120825
  Serious: Yes (Hospitalization, Other)
  Sender: FDA-Public Use
  Company Number: FR-PFIZER INC-2011167900

PATIENT
  Age: 53 Year
  Sex: Male

DRUGS (6)
  1. ATORVASTATIN [Suspect]
     Indication: DYSLIPIDAEMIA
     Dosage: 40 MG, 1X/DAY
     Route: 048
     Dates: start: 20110523, end: 20110528
  2. XANAX [Concomitant]
     Dosage: 0.25 MG, 1X/DAY
     Route: 048
     Dates: start: 20110520, end: 20110531
  3. PREDNISOLONE [Concomitant]
     Dosage: UNK
     Route: 048
     Dates: start: 20110514, end: 20110520
  4. ACETAMINOPHEN AND TRAMADOL HCL [Concomitant]
     Dosage: UNK
     Route: 048
     Dates: start: 20110514, end: 20110520
  5. TANGANIL [Concomitant]
     Dosage: UNK
     Dates: end: 20110531
  6. OMEPRAZOLE [Concomitant]
     Dosage: UNK

REACTIONS (7)
  - SYNCOPE [None]
  - RASH GENERALISED [None]
  - ARRHYTHMIA [None]
  - COLITIS ISCHAEMIC [None]
  - VENTRICULAR TACHYCARDIA [None]
  - CARDIOGENIC SHOCK [None]
  - RENAL IMPAIRMENT [None]
